FAERS Safety Report 8574644-X (Version None)
Quarter: 2012Q3

REPORT INFORMATION
  Report Type: 
  Country: None (occurrence: None)
  Receive Date: 20120807
  Receipt Date: 20120727
  Transmission Date: 20120928
  Serious: No
  Sender: FDA-Public Use
  Company Number: US-009507513-1207USA012170

PATIENT

DRUGS (9)
  1. PROVENTIL [Suspect]
  2. IPRATROPIUM BROMIDE [Suspect]
  3. ALLEGRA [Suspect]
     Route: 048
  4. BUDESONIDE [Suspect]
     Route: 055
  5. SPIRIVA [Suspect]
  6. BROVANA [Suspect]
  7. NASONEX [Suspect]
  8. ASTEPRO [Suspect]
  9. FLUTICASONE PROPIONATE [Suspect]

REACTIONS (4)
  - DYSPEPSIA [None]
  - HEART RATE INCREASED [None]
  - BLOOD PRESSURE INCREASED [None]
  - CHEST PAIN [None]
